FAERS Safety Report 25377941 (Version 2)
Quarter: 2025Q2

REPORT INFORMATION
  Report Type: Spontaneous
  Country: DE (occurrence: DE)
  Receive Date: 20250530
  Receipt Date: 20250627
  Transmission Date: 20250716
  Serious: Yes (Other)
  Sender: Unknown Manufacturer
  Company Number: DE-PPDUS-2024RHM000424

PATIENT

DRUGS (1)
  1. IMCIVREE [Suspect]
     Active Substance: SETMELANOTIDE
     Indication: Laurence-Moon-Bardet-Biedl syndrome

REACTIONS (4)
  - Paralysis [Recovered/Resolved]
  - Spinal pain [Recovered/Resolved]
  - Hypoglycaemia [Unknown]
  - Hypophagia [Unknown]
